FAERS Safety Report 4463893-8 (Version None)
Quarter: 2004Q3

REPORT INFORMATION
  Report Type: 
  Country: None (occurrence: None)
  Receive Date: 20040929
  Receipt Date: 20040916
  Transmission Date: 20050211
  Serious: Yes (Hospitalization, Other)
  Sender: FDA-Public Use
  Company Number: 2004033586

PATIENT
  Age: 38 Year
  Sex: Female

DRUGS (1)
  1. VORICONAZOLE (VORICONAZOLE) [Suspect]
     Indication: SINUSITIS ASPERGILLUS
     Dosage: 400 MG (200 MG, 2 IN 1 D), ORAL
     Route: 048
     Dates: start: 19950101

REACTIONS (9)
  - ASPERGILLOSIS [None]
  - CEREBROVASCULAR ACCIDENT [None]
  - CHEILITIS [None]
  - CONSTIPATION [None]
  - ERYTHEMA [None]
  - HYPOGLYCAEMIA [None]
  - LACTIC ACIDOSIS [None]
  - MELAS SYNDROME [None]
  - MITOCHONDRIAL ENCEPHALOMYOPATHY [None]
